FAERS Safety Report 17273830 (Version 4)
Quarter: 2020Q1

REPORT INFORMATION
  Report Type: Report from Study
  Country: IL (occurrence: IL)
  Receive Date: 20200115
  Receipt Date: 20200328
  Transmission Date: 20200409
  Serious: Yes (Hospitalization, Other)
  Sender: FDA-Public Use
  Company Number: PHHY2019IL224723

PATIENT
  Age: 74 Year
  Sex: Female

DRUGS (1)
  1. REVOLADE [Suspect]
     Active Substance: ELTROMBOPAG
     Indication: IMMUNE THROMBOCYTOPENIC PURPURA
     Dosage: 25 MG, QD
     Route: 048
     Dates: start: 20150101

REACTIONS (14)
  - Hypoaesthesia [Recovering/Resolving]
  - Low density lipoprotein increased [Unknown]
  - Gastric cancer [Not Recovered/Not Resolved]
  - Vitamin B12 decreased [Unknown]
  - Cerebral infarction [Unknown]
  - Defaecation disorder [Not Recovered/Not Resolved]
  - Alopecia [Not Recovered/Not Resolved]
  - Abdominal pain [Not Recovered/Not Resolved]
  - Cervix carcinoma [Not Recovered/Not Resolved]
  - Transient ischaemic attack [Not Recovered/Not Resolved]
  - Platelet count decreased [Recovered/Resolved]
  - Osteoporosis [Not Recovered/Not Resolved]
  - Limb discomfort [Recovering/Resolving]
  - Abdominal pain lower [Not Recovered/Not Resolved]

NARRATIVE: CASE EVENT DATE: 20200109
